FAERS Safety Report 6974330-3 (Version None)
Quarter: 2010Q3

REPORT INFORMATION
  Report Type: 
  Country: None (occurrence: None)
  Receive Date: 20100909
  Receipt Date: 20100830
  Transmission Date: 20110219
  Serious: Yes (Other)
  Sender: FDA-Public Use
  Company Number: PHHY2010US46587

PATIENT
  Sex: Female
  Weight: 64 kg

DRUGS (5)
  1. RECLAST [Suspect]
     Dosage: UNK
     Dates: start: 20100623
  2. CALTRATE +D [Concomitant]
  3. VITAMIN D [Concomitant]
     Dosage: 1000 MG, QD
  4. SYNTHROID [Concomitant]
     Indication: HYPERTHYROIDISM
     Dosage: 112
     Route: 048
     Dates: start: 20100819
  5. PREVACID [Concomitant]
     Indication: GASTROOESOPHAGEAL REFLUX DISEASE
     Dosage: 30

REACTIONS (5)
  - ARTHRALGIA [None]
  - DIZZINESS [None]
  - FATIGUE [None]
  - NAUSEA [None]
  - PHOTOSENSITIVITY REACTION [None]
